FAERS Safety Report 5478176-7 (Version None)
Quarter: 2007Q4

REPORT INFORMATION
  Report Type: 
  Country: None (occurrence: None)
  Receive Date: 20071005
  Receipt Date: 20070302
  Transmission Date: 20080405
  Serious: No
  Sender: FDA-Public Use
  Company Number: US-BRISTOL-MYERS SQUIBB COMPANY-13698717

PATIENT
  Age: 85 Year
  Sex: Male

DRUGS (9)
  1. AVAPRO [Suspect]
  2. LIPITOR [Concomitant]
  3. FOSAMAX [Concomitant]
  4. TOPROL-XL [Concomitant]
  5. VERAPMIL [Concomitant]
  6. EPIPEN [Concomitant]
  7. POTASSIUM CHLORIDE [Concomitant]
  8. FUROSEMIDE [Concomitant]
  9. NEXIUM [Concomitant]

REACTIONS (2)
  - SWELLING FACE [None]
  - URTICARIA [None]
